FAERS Safety Report 4923053-0 (Version None)
Quarter: 2006Q1

REPORT INFORMATION
  Report Type: 
  Country: None (occurrence: None)
  Receive Date: 20060125
  Receipt Date: 20050126
  Transmission Date: 20060701
  Serious: Yes (Hospitalization)
  Sender: FDA-Public Use
  Company Number: HQWYE943828JAN05

PATIENT
  Age: 82 Year
  Sex: Female

DRUGS (5)
  1. CORDARONE [Suspect]
     Indication: ATRIAL FIBRILLATION
     Dosage: 200 MG 1X PER 1 DAY, ORAL
     Route: 048
     Dates: end: 20050117
  2. LIPITOR [Concomitant]
  3. CAPOTEN [Concomitant]
  4. LEVAQUIN [Concomitant]
  5. DETROL [Concomitant]

REACTIONS (1)
  - PULMONARY TOXICITY [None]
